FAERS Safety Report 7770014-2 (Version None)
Quarter: 2011Q3

REPORT INFORMATION
  Report Type: 
  Country: None (occurrence: None)
  Receive Date: 20110922
  Receipt Date: 20100827
  Transmission Date: 20111222
  Serious: No
  Sender: FDA-Public Use
  Company Number: US-ASTRAZENECA-2008UW01193

PATIENT
  Age: 32 Year
  Sex: Female
  Weight: 95.3 kg

DRUGS (32)
  1. SEROQUEL [Suspect]
     Dosage: 50 MG - 200 MG
     Route: 048
     Dates: start: 20040622
  2. DEPAKOTE [Concomitant]
     Route: 048
  3. TRAZODONE HYDROCHLORIDE [Concomitant]
     Route: 048
  4. ZYPREXA [Concomitant]
     Indication: SCHIZOPHRENIA
  5. SEROQUEL [Suspect]
     Indication: SCHIZOPHRENIA
     Route: 048
     Dates: start: 20030101, end: 20071201
  6. DIAZEPAM [Concomitant]
     Route: 048
  7. PERPHENAZINE [Concomitant]
     Dosage: 4 MG - 8 MG
  8. RANITIDINE [Concomitant]
     Route: 048
  9. ABILIFY [Concomitant]
  10. SEROQUEL [Suspect]
     Dosage: 50 MG - 200 MG
     Route: 048
     Dates: start: 20040622
  11. ALBUTEROL [Concomitant]
     Dosage: 90 MICROGRAM, TWO PUFFS EVERY FOUR HOURS AS NEEDED
  12. HYDROXYZINE [Concomitant]
     Route: 048
  13. LORAZEPAM [Concomitant]
     Dosage: 0.5 MG - 2 MG
     Route: 048
  14. LUNESTA [Concomitant]
     Route: 048
  15. CARISOPRODOL [Concomitant]
     Route: 048
  16. STELAZINE [Concomitant]
  17. SEROQUEL [Suspect]
     Indication: BIPOLAR DISORDER
     Route: 048
     Dates: start: 20030101, end: 20071201
  18. GABAPENTIN [Concomitant]
     Route: 048
  19. IMITREX [Concomitant]
     Route: 048
  20. MINOCYCLINE HCL [Concomitant]
     Route: 048
  21. PROMETHAZINE [Concomitant]
     Route: 048
  22. DIAZEPAM [Concomitant]
     Route: 048
  23. AMITRIPTYLINE HCL [Concomitant]
     Dosage: 25 MG - 50 MG
     Route: 048
  24. DIAZEPAM [Concomitant]
     Route: 048
  25. ZYPREXA [Concomitant]
     Indication: BIPOLAR DISORDER
  26. BENZTROPINE MESYLATE [Concomitant]
     Route: 048
  27. DIAZEPAM [Concomitant]
     Route: 048
  28. HYDROXYZINE [Concomitant]
     Route: 048
  29. PERCOCET [Concomitant]
     Dosage: 10 MG/ 325 MG EVERY FOUR HOURS
     Route: 048
  30. PREDNISONE [Concomitant]
     Dosage: 20 MG - 40 MG
     Route: 048
  31. CLOZAPINE [Concomitant]
  32. THORAZINE [Concomitant]

REACTIONS (4)
  - DIABETIC COMPLICATION [None]
  - ADVERSE DRUG REACTION [None]
  - OBESITY [None]
  - DIABETES MELLITUS [None]
